FAERS Safety Report 8590588-1 (Version None)
Quarter: 2012Q3

REPORT INFORMATION
  Report Type: 
  Country: None (occurrence: None)
  Receive Date: 20120813
  Receipt Date: 20120803
  Transmission Date: 20120928
  Serious: Yes (Hospitalization)
  Sender: FDA-Public Use
  Company Number: ES-ABBOTT-12P-144-0949825-01

PATIENT
  Age: 43 Year
  Sex: Male
  Weight: 79 kg

DRUGS (7)
  1. HUMIRA [Suspect]
     Indication: CROHN'S DISEASE
     Dosage: (BASELINE)
     Route: 058
     Dates: start: 20060301, end: 20060301
  2. HUMIRA [Suspect]
     Dosage: MONTH 3
     Route: 058
     Dates: start: 20090930
  3. HUMIRA [Suspect]
     Route: 058
  4. CALCIUM CARBONATE [Concomitant]
     Indication: MINERAL SUPPLEMENTATION
  5. AZATHIOPRINE SODIUM [Concomitant]
     Indication: CROHN'S DISEASE
  6. HUMIRA [Suspect]
     Dosage: (WEEK 2)
     Route: 058
  7. OMEPRAZOLE [Concomitant]
     Indication: DYSPEPSIA

REACTIONS (1)
  - CEREBRAL CYST [None]
